FAERS Safety Report 6169185-3 (Version None)
Quarter: 2009Q2

REPORT INFORMATION
  Report Type: 
  Country: None (occurrence: None)
  Receive Date: 20090424
  Receipt Date: 20090216
  Transmission Date: 20091009
  Serious: No
  Sender: FDA-Public Use
  Company Number: ALL1-2009-00422

PATIENT
  Age: 8 Year
  Sex: Male
  Weight: 27.2 kg

DRUGS (2)
  1. VYVANSE [Suspect]
     Indication: ATTENTION DEFICIT/HYPERACTIVITY DISORDER
     Dosage: 20 MG, 1X/DAY:QD, ORAL ; 50 MG, 1X/DAY:QD, ORAL
     Route: 048
     Dates: start: 20080101, end: 20080101
  2. VYVANSE [Suspect]
     Indication: ATTENTION DEFICIT/HYPERACTIVITY DISORDER
     Dosage: 20 MG, 1X/DAY:QD, ORAL ; 50 MG, 1X/DAY:QD, ORAL
     Route: 048
     Dates: start: 20080101, end: 20080801

REACTIONS (14)
  - AGGRESSION [None]
  - ANOREXIA [None]
  - DEHYDRATION [None]
  - DRY MOUTH [None]
  - DYSPHAGIA [None]
  - EYE IRRITATION [None]
  - EYE PRURITUS [None]
  - EYE SWELLING [None]
  - FLAT AFFECT [None]
  - INSOMNIA [None]
  - LETHARGY [None]
  - LOCALISED OEDEMA [None]
  - NECK PAIN [None]
  - WEIGHT DECREASED [None]
